FAERS Safety Report 20843013 (Version 1)
Quarter: 2022Q2

REPORT INFORMATION
  Report Type: Spontaneous
  Country: US (occurrence: None)
  Receive Date: 20220517
  Receipt Date: 20220517
  Transmission Date: 20220721
  Serious: No
  Sender: FDA-Public Use
  Company Number: None

PATIENT
  Sex: Female

DRUGS (1)
  1. HUMIRA [Suspect]
     Active Substance: ADALIMUMAB
     Indication: Rheumatoid arthritis
     Dosage: 40MG/0.4ML EVERY 14 DAYS SUBCUTANEOUS? ?
     Route: 058
     Dates: start: 20210824

REACTIONS (6)
  - Condition aggravated [None]
  - Hypoaesthesia [None]
  - Paraesthesia [None]
  - Back pain [None]
  - Pain in extremity [None]
  - Arthralgia [None]
